FAERS Safety Report 22236940 (Version 2)
Quarter: 2023Q2

REPORT INFORMATION
  Report Type: Spontaneous
  Country: US (occurrence: US)
  Receive Date: 20230420
  Receipt Date: 20230428
  Transmission Date: 20230721
  Serious: Yes (Life-Threatening, Hospitalization, Other)
  Sender: FDA-Public Use
  Company Number: US-BRISTOL-MYERS SQUIBB COMPANY-2023-055787

PATIENT
  Age: 81 Year
  Sex: Female

DRUGS (2)
  1. POMALYST [Suspect]
     Active Substance: POMALIDOMIDE
     Indication: Plasma cell myeloma
     Dosage: TAKE 1 CAPSULE BY MOUTH DAILY FOR 14 DAYS THEN TAKE 7 DAY BREAK
     Route: 048
     Dates: start: 20221231, end: 202304
  2. DARZALEX [Concomitant]
     Active Substance: DARATUMUMAB
     Indication: Product used for unknown indication

REACTIONS (10)
  - Acute respiratory failure [Unknown]
  - Off label use [Unknown]
  - Hypervolaemia [Unknown]
  - Pneumonia [Unknown]
  - Hypotension [Unknown]
  - Ejection fraction abnormal [Unknown]
  - Condition aggravated [Unknown]
  - Mitral valve stenosis [Unknown]
  - Stress cardiomyopathy [Unknown]
  - Cardiac valve disease [Unknown]

NARRATIVE: CASE EVENT DATE: 20230327
